FAERS Safety Report 22360610 (Version 3)
Quarter: 2023Q2

REPORT INFORMATION
  Report Type: Report from Study
  Country: US (occurrence: US)
  Receive Date: 20230524
  Receipt Date: 20230609
  Transmission Date: 20230722
  Serious: No
  Sender: FDA-Public Use
  Company Number: US-002147023-NVSC2023US113380

PATIENT
  Sex: Female

DRUGS (1)
  1. KESIMPTA [Suspect]
     Active Substance: OFATUMUMAB
     Indication: Multiple sclerosis
     Dosage: UNK
     Route: 065

REACTIONS (9)
  - Pain [Unknown]
  - Feeling abnormal [Unknown]
  - Limb discomfort [Unknown]
  - Food allergy [Recovered/Resolved]
  - Chills [Unknown]
  - Pyrexia [Unknown]
  - Pruritus [Unknown]
  - Dysphagia [Unknown]
  - Dyspnoea [Unknown]
